FAERS Safety Report 19112554 (Version 1)
Quarter: 2021Q2

REPORT INFORMATION
  Report Type: Spontaneous
  Country: NL (occurrence: NL)
  Receive Date: 20210408
  Receipt Date: 20210408
  Transmission Date: 20210717
  Serious: Yes (Other)
  Sender: FDA-Public Use
  Company Number: NL-TEVA-2021-NL-1897825

PATIENT
  Age: 75 Year
  Sex: Male
  Weight: 75 kg

DRUGS (4)
  1. NIFEDIPINE TABLET RETARD 10MG / BRAND NAME NOT SPECIFIED [Suspect]
     Active Substance: NIFEDIPINE
     Indication: HYPERTENSION
     Dosage: 10 MILLIGRAM DAILY; 1X P/D
     Dates: start: 20200304, end: 20210105
  2. LISINOPRIL TABLET  5MG / BRAND NAME NOT SPECIFIED [Concomitant]
     Active Substance: LISINOPRIL
     Dosage: THERAPY START DATE:THERAPY END DATE :ASKU
  3. TAMSULOSINE TABLET MGA 0,4MG / BRAND NAME NOT SPECIFIED [Concomitant]
     Active Substance: TAMSULOSIN HYDROCHLORIDE
     Dosage: THERAPY START DATE :THERAPY END DATE:ASKU
  4. METOPROLOL TABLET MGA 100MG (SUCCINAAT) / BRAND NAME NOT SPECIFIED [Concomitant]
     Dosage: THERAPY START DATE :THERAPY END DATE:ASKU

REACTIONS (3)
  - Rash erythematous [Recovered/Resolved]
  - Target skin lesion [Recovered/Resolved]
  - Pruritus [Recovered/Resolved]

NARRATIVE: CASE EVENT DATE: 20200319
